FAERS Safety Report 5113794-7 (Version None)
Quarter: 2006Q3

REPORT INFORMATION
  Report Type: 
  Country: None (occurrence: None)
  Receive Date: 20060925
  Receipt Date: 20051027
  Transmission Date: 20061208
  Serious: Yes (Hospitalization)
  Sender: FDA-Public Use
  Company Number: FR-ROCHE-422917

PATIENT
  Age: 46 Year
  Sex: Male
  Weight: 65 kg

DRUGS (12)
  1. INVIRASE [Suspect]
     Route: 048
     Dates: start: 20040201, end: 20050725
  2. BACTRIM [Interacting]
     Indication: DRUG USE FOR UNKNOWN INDICATION
     Route: 048
     Dates: end: 20050725
  3. SUSTIVA [Interacting]
     Indication: DRUG USE FOR UNKNOWN INDICATION
     Route: 048
     Dates: start: 20040201, end: 20050725
  4. NORVIR [Interacting]
     Indication: DRUG USE FOR UNKNOWN INDICATION
     Route: 048
     Dates: start: 20040201, end: 20050725
  5. TAXOL [Interacting]
     Dosage: DOSAGE REPORTED AS 378 MG ONC.
     Route: 042
     Dates: start: 20050718, end: 20050718
  6. VIDEX [Interacting]
     Indication: DRUG USE FOR UNKNOWN INDICATION
     Route: 048
     Dates: end: 20050725
  7. CARBOPLATIN [Suspect]
     Indication: DRUG USE FOR UNKNOWN INDICATION
     Dosage: DOSAGE REPORTED AS 327 MG ONC.
     Route: 042
     Dates: start: 20050718, end: 20050718
  8. NELFINAVIR [Concomitant]
  9. LAMIVUDINE [Concomitant]
  10. ZIDOVUDINE [Concomitant]
  11. VANCOMYCIN [Concomitant]
  12. NEULASTA [Concomitant]

REACTIONS (15)
  - ANAEMIA [None]
  - ANAL ULCER [None]
  - DRUG INTERACTION [None]
  - DYSPHAGIA [None]
  - LUNG NEOPLASM MALIGNANT [None]
  - METASTASES TO LIVER [None]
  - MUCOSAL INFLAMMATION [None]
  - NEUTROPENIA [None]
  - ORAL CANDIDIASIS [None]
  - RENAL FAILURE ACUTE [None]
  - RHONCHI [None]
  - TACHYCARDIA [None]
  - TACHYPNOEA [None]
  - THROMBOCYTOPENIA [None]
  - UNEVALUABLE EVENT [None]
